FAERS Safety Report 21909802 (Version 1)
Quarter: 2023Q1

REPORT INFORMATION
  Report Type: Report from Study
  Country: FR (occurrence: None)
  Receive Date: 20230125
  Receipt Date: 20230125
  Transmission Date: 20230418
  Serious: Yes (Other)
  Sender: FDA-Public Use
  Company Number: FR-Merck Healthcare KGaA-9378164

PATIENT
  Sex: Female

DRUGS (1)
  1. LEVOTHYROXINE [Suspect]
     Active Substance: LEVOTHYROXINE
     Indication: Autoimmune thyroiditis

REACTIONS (13)
  - Dizziness [Unknown]
  - Fatigue [Unknown]
  - Exophthalmos [Unknown]
  - Night sweats [Unknown]
  - Dyspepsia [Unknown]
  - Hyperthyroidism [Recovered/Resolved]
  - Tachycardia [Unknown]
  - Weight decreased [Unknown]
  - Colon cancer [Unknown]
  - Thyroid stimulating immunoglobulin [Unknown]
  - Basedow^s disease [Unknown]
  - Anti-thyroid antibody increased [Unknown]
  - Hypothyroidism [Unknown]
